FAERS Safety Report 9613838 (Version 1)
Quarter: 2013Q4

REPORT INFORMATION
  Report Type: Spontaneous
  Country: US (occurrence: US)
  Receive Date: 20131010
  Receipt Date: 20131010
  Transmission Date: 20140711
  Serious: No
  Sender: FDA-Public Use
  Company Number: US-ALLERGAN-1312205US

PATIENT
  Sex: Male

DRUGS (2)
  1. VANIQA [Suspect]
     Indication: HAIR GROWTH ABNORMAL
     Dosage: DF [APPLIED ONLY 2 TIMES ON HIS CHEEKS, CHIN, ABOVE THE LIP AND NECK AREA]
     Route: 061
     Dates: start: 201301, end: 201301
  2. AVEENO POSITIVELY RADIANT LOTION [Concomitant]
     Indication: THERAPEUTIC SKIN CARE TOPICAL
     Dosage: DF

REACTIONS (2)
  - Acne [Unknown]
  - Erythema [Unknown]
